FAERS Safety Report 5154316-4 (Version None)
Quarter: 2006Q4

REPORT INFORMATION
  Report Type: 
  Country: None (occurrence: None)
  Receive Date: 20061114
  Receipt Date: 20061103
  Transmission Date: 20070319
  Serious: Yes (Other)
  Sender: FDA-Public Use
  Company Number: GXKR2006GB06946

PATIENT
  Age: 76 Year
  Sex: Male

DRUGS (2)
  1. ASPIRIN [Suspect]
  2. CLOPIDOGREL [Suspect]

REACTIONS (2)
  - DRUG INTERACTION [None]
  - VITREOUS HAEMORRHAGE [None]
